FAERS Safety Report 5914072-6 (Version None)
Quarter: 2008Q4

REPORT INFORMATION
  Report Type: 
  Country: None (occurrence: None)
  Receive Date: 20081009
  Receipt Date: 20081009
  Transmission Date: 20090506
  Serious: Yes (Death)
  Sender: FDA-Public Use
  Company Number: MX-ABBOTT-08P-107-0474464-00

PATIENT
  Sex: Male

DRUGS (1)
  1. KALETRA [Suspect]
     Indication: HIV INFECTION
     Dosage: 399.99/99.99 MG BID
     Route: 048
     Dates: start: 20060221, end: 20061101

REACTIONS (1)
  - SEPTIC SHOCK [None]
